FAERS Safety Report 23875583 (Version 2)
Quarter: 2024Q2

REPORT INFORMATION
  Report Type: Report from Study
  Country: MX (occurrence: MX)
  Receive Date: 20240520
  Receipt Date: 20240531
  Transmission Date: 20240716
  Serious: Yes (Hospitalization, Disabling)
  Sender: FDA-Public Use
  Company Number: MX-ABBVIE-5765956

PATIENT
  Age: 67 Year
  Sex: Female
  Weight: 75 kg

DRUGS (7)
  1. HUMIRA [Suspect]
     Active Substance: ADALIMUMAB
     Indication: Rheumatoid arthritis
     Dosage: FORM STRENGTH UNITS: 40 MILLIGRAM
     Route: 058
     Dates: start: 20140626, end: 202405
  2. VITAMIN B AND C COMPLEX [Concomitant]
     Indication: Product used for unknown indication
  3. SINPEBAC [Concomitant]
     Indication: Wound necrosis
     Dates: start: 2024
  4. ANASTROZOLE [Concomitant]
     Active Substance: ANASTROZOLE
     Indication: Breast cancer
     Dosage: 1 TABLET
     Dates: start: 2019
  5. ZINC OXIDE [Concomitant]
     Active Substance: ZINC OXIDE
     Indication: Wound necrosis
     Dates: start: 2024
  6. TELMISARTAN [Concomitant]
     Active Substance: TELMISARTAN
     Indication: Hypertension
     Dosage: 2 TABLETS IN MORNING
  7. ACEMETACIN [Concomitant]
     Active Substance: ACEMETACIN
     Indication: Product used for unknown indication

REACTIONS (8)
  - Wound necrosis [Recovering/Resolving]
  - Gait inability [Not Recovered/Not Resolved]
  - Sneezing [Not Recovered/Not Resolved]
  - Arthralgia [Not Recovered/Not Resolved]
  - Body height decreased [Not Recovered/Not Resolved]
  - Arthropod bite [Recovering/Resolving]
  - Rheumatic disorder [Not Recovered/Not Resolved]
  - Pain in extremity [Not Recovered/Not Resolved]

NARRATIVE: CASE EVENT DATE: 20240401
